FAERS Safety Report 20090688 (Version 1)
Quarter: 2021Q4

REPORT INFORMATION
  Report Type: Report from Study
  Country: US (occurrence: US)
  Receive Date: 20211119
  Receipt Date: 20211119
  Transmission Date: 20220303
  Serious: Yes (Other)
  Sender: FDA-Public Use
  Company Number: US-BRISTOL-MYERS SQUIBB COMPANY-BMS-2021-123728

PATIENT
  Age: 80 Year
  Sex: Female

DRUGS (1)
  1. APIXABAN [Suspect]
     Active Substance: APIXABAN
     Indication: Product used for unknown indication
     Dosage: 5 MILLIGRAM
     Route: 065
     Dates: start: 2019

REACTIONS (10)
  - Cardiac disorder [Unknown]
  - Cardiac valve disease [Unknown]
  - Haemorrhage [Unknown]
  - Nephrolithiasis [Unknown]
  - Hydronephrosis [Unknown]
  - Fibromyalgia [Unknown]
  - Osteoarthritis [Unknown]
  - Gastric ulcer [Unknown]
  - Gastritis [Unknown]
  - Contusion [Unknown]

NARRATIVE: CASE EVENT DATE: 20211103
